FAERS Safety Report 5697781-6 (Version None)
Quarter: 2008Q2

REPORT INFORMATION
  Report Type: 
  Country: None (occurrence: None)
  Receive Date: 20080404
  Receipt Date: 20080404
  Transmission Date: 20081010
  Serious: Yes (Other)
  Sender: FDA-Public Use
  Company Number: None

PATIENT
  Sex: Female
  Weight: 95.709 kg

DRUGS (11)
  1. EFFEXOR [Suspect]
     Indication: DEPRESSION
     Dosage: 1PILL 2X A DAY PO
     Route: 048
  2. TEGRETOL [Suspect]
     Indication: MOOD SWINGS
     Dosage: 1PILL 3X A DAY  PO
     Route: 048
  3. LORATADINE [Concomitant]
  4. NEXIUM [Concomitant]
  5. ASTELIN [Concomitant]
  6. NASONEX [Concomitant]
  7. SINGULAIR [Concomitant]
  8. GUAIFENEX DM [Concomitant]
  9. AVAPRO [Concomitant]
  10. ORTHO TRI-CYCLEN [Concomitant]
  11. ALBUTEROL [Concomitant]

REACTIONS (2)
  - BLOOD SODIUM DECREASED [None]
  - CONVULSION [None]
